FAERS Safety Report 7331444-6 (Version None)
Quarter: 2011Q1

REPORT INFORMATION
  Report Type: 
  Country: None (occurrence: None)
  Receive Date: 20110228
  Receipt Date: 20110228
  Transmission Date: 20110831
  Serious: Yes (Other)
  Sender: FDA-Public Use
  Company Number: None

PATIENT
  Age: 58 Year
  Sex: Female
  Weight: 61.2356 kg

DRUGS (1)
  1. ALENDRONATE SODIUM [Suspect]
     Dosage: ONCE A WEEK

REACTIONS (1)
  - TOOTH FRACTURE [None]
